FAERS Safety Report 5466663-7 (Version None)
Quarter: 2007Q3

REPORT INFORMATION
  Report Type: 
  Country: None (occurrence: None)
  Receive Date: 20070924
  Receipt Date: 20070924
  Transmission Date: 20080115
  Serious: Yes (Other)
  Sender: FDA-Public Use
  Company Number: None

PATIENT
  Age: 12 Year
  Sex: Male

DRUGS (1)
  1. PROZAC [Suspect]
     Dosage: 10 MG PER DAY
     Dates: start: 20040412, end: 20050826

REACTIONS (6)
  - DECREASED APPETITE [None]
  - FATIGUE [None]
  - JAUNDICE [None]
  - LIVER DISORDER [None]
  - NAUSEA [None]
  - PROTHROMBIN TIME PROLONGED [None]
